FAERS Safety Report 5584127-7 (Version None)
Quarter: 2008Q1

REPORT INFORMATION
  Report Type: 
  Country: None (occurrence: None)
  Receive Date: 20080108
  Receipt Date: 20071105
  Transmission Date: 20080703
  Serious: Yes (Other)
  Sender: FDA-Public Use
  Company Number: US-ASTRAZENECA-2007UW25564

PATIENT
  Age: 70 Year
  Sex: Female
  Weight: 54.4 kg

DRUGS (3)
  1. ARIMIDEX [Suspect]
     Indication: BREAST CANCER
     Route: 048
     Dates: start: 20070901
  2. AMBIEN [Concomitant]
  3. PROVIGIL [Concomitant]

REACTIONS (8)
  - BODY HEIGHT DECREASED [None]
  - DECREASED APPETITE [None]
  - DEPRESSED MOOD [None]
  - INSOMNIA [None]
  - LETHARGY [None]
  - MENOPAUSE [None]
  - NAUSEA [None]
  - PARAESTHESIA [None]
